FAERS Safety Report 6937709-1 (Version None)
Quarter: 2010Q3

REPORT INFORMATION
  Report Type: 
  Country: None (occurrence: None)
  Receive Date: 20100820
  Receipt Date: 20100820
  Transmission Date: 20110219
  Serious: No
  Sender: FDA-Public Use
  Company Number: None

PATIENT
  Age: 44 Year
  Sex: Male
  Weight: 77.1115 kg

DRUGS (1)
  1. ZICAM COLD REMEDY NASAL SWABS UNKNOWN, 20 IN A PACK MATRIXX [Suspect]
     Indication: NASOPHARYNGITIS
     Dosage: 1 SWAB PER APPLICATION EVERY 4 HOURS NASAL
     Route: 045
     Dates: start: 20090501, end: 20090517

REACTIONS (1)
  - ANOSMIA [None]
